FAERS Safety Report 23898350 (Version 2)
Quarter: 2024Q2

REPORT INFORMATION
  Report Type: Spontaneous
  Country: CA (occurrence: CA)
  Receive Date: 20240524
  Receipt Date: 20240524
  Transmission Date: 20240715
  Serious: Yes (Other)
  Sender: FDA-Public Use
  Company Number: CA-CIPHER-2024-CA-000331

PATIENT
  Age: 19 Year
  Sex: Female
  Weight: 72 kg

DRUGS (8)
  1. TRAMADOL HYDROCHLORIDE [Suspect]
     Active Substance: TRAMADOL HYDROCHLORIDE
     Indication: Product used for unknown indication
  2. ACTEMRA [Suspect]
     Active Substance: TOCILIZUMAB
     Indication: Rheumatoid arthritis
     Route: 058
  3. CELECOXIB [Concomitant]
     Active Substance: CELECOXIB
     Indication: Product used for unknown indication
  4. CYMBALTA [Concomitant]
     Active Substance: DULOXETINE HYDROCHLORIDE
     Indication: Product used for unknown indication
  5. PREDNISONE [Suspect]
     Active Substance: PREDNISONE
     Indication: Product used for unknown indication
  6. RINVOQ [Suspect]
     Active Substance: UPADACITINIB
     Indication: Product used for unknown indication
  7. RITUXIMAB [Suspect]
     Active Substance: RITUXIMAB
     Indication: Rheumatoid arthritis
     Route: 042
  8. XELJANZ [Suspect]
     Active Substance: TOFACITINIB CITRATE
     Indication: Rheumatoid arthritis

REACTIONS (41)
  - Fluid retention [Unknown]
  - Gait disturbance [Unknown]
  - Gastric ulcer [Unknown]
  - Headache [Unknown]
  - Heart rate increased [Unknown]
  - Hypoaesthesia [Unknown]
  - Influenza [Unknown]
  - Infusion related reaction [Unknown]
  - Injection site induration [Unknown]
  - Injection site pain [Unknown]
  - Bronchitis [Unknown]
  - Insomnia [Unknown]
  - Instillation site inflammation [Unknown]
  - Intervertebral disc protrusion [Unknown]
  - Joint dislocation [Unknown]
  - Joint effusion [Unknown]
  - Lethargy [Unknown]
  - Memory impairment [Unknown]
  - Muscle spasms [Unknown]
  - Muscular weakness [Unknown]
  - Nausea [Unknown]
  - COVID-19 [Unknown]
  - Oropharyngeal pain [Unknown]
  - Osteoarthritis [Unknown]
  - Pain [Unknown]
  - Pyrexia [Unknown]
  - Rheumatoid arthritis [Unknown]
  - Tachycardia [Unknown]
  - Treatment failure [Unknown]
  - Vascular pain [Unknown]
  - Viral infection [Unknown]
  - Vitamin C decreased [Unknown]
  - Chest pain [Unknown]
  - Vomiting [Unknown]
  - Weight increased [Unknown]
  - Vitamin D decreased [Unknown]
  - Dizziness [Unknown]
  - Drug ineffective [Unknown]
  - Fatigue [Unknown]
  - Feeling abnormal [Unknown]
  - Fine motor skill dysfunction [Unknown]
